FAERS Safety Report 5080231-0 (Version None)
Quarter: 2006Q3

REPORT INFORMATION
  Report Type: 
  Country: None (occurrence: None)
  Receive Date: 20060815
  Receipt Date: 20060803
  Transmission Date: 20061208
  Serious: Yes (Other)
  Sender: FDA-Public Use
  Company Number: US-GILEAD-2006-0010007

PATIENT
  Age: 35 Year
  Sex: Female

DRUGS (3)
  1. VIREAD [Suspect]
     Indication: HIV INFECTION
  2. DIDANOSINE [Concomitant]
     Indication: HIV INFECTION
  3. KALETRA [Concomitant]
     Indication: HIV INFECTION

REACTIONS (1)
  - HYPOKALAEMIA [None]
